FAERS Safety Report 6162499-2 (Version None)
Quarter: 2009Q2

REPORT INFORMATION
  Report Type: 
  Country: None (occurrence: None)
  Receive Date: 20090417
  Receipt Date: 20090401
  Transmission Date: 20091009
  Serious: Yes (Death)
  Sender: FDA-Public Use
  Company Number: 8044404

PATIENT
  Age: 16 Year
  Sex: Male
  Weight: 70 kg

DRUGS (2)
  1. KEPPRA [Suspect]
     Indication: EPILEPSY
     Dosage: 1500 MG PO
     Route: 048
     Dates: start: 20081101, end: 20090309
  2. KEPPRA [Suspect]
     Indication: EPILEPSY
     Dosage: 500 MG PO
     Route: 048
     Dates: start: 20090310, end: 20090310

REACTIONS (2)
  - CONVULSION [None]
  - DRUG DOSE OMISSION [None]
